FAERS Safety Report 7781909-8 (Version None)
Quarter: 2011Q3

REPORT INFORMATION
  Report Type: 
  Country: None (occurrence: None)
  Receive Date: 20110927
  Receipt Date: 20110921
  Transmission Date: 20111222
  Serious: Yes (Death, Hospitalization, Other)
  Sender: FDA-Public Use
  Company Number: IT-CELGENEUS-083-21880-08061721

PATIENT
  Sex: Female
  Weight: 69.5 kg

DRUGS (16)
  1. ROSUVASTATIN [Concomitant]
     Dosage: 20 MILLIGRAM
     Route: 048
  2. ALPRAZOLAM [Concomitant]
     Dosage: 5 DROPS
     Route: 048
  3. DARBEPOETIN ALFA [Concomitant]
     Dosage: 40 MICROGRAM
     Route: 058
     Dates: start: 20080503
  4. PANCRELIPASE [Concomitant]
     Dosage: 680 MILLIGRAM
     Route: 048
     Dates: start: 20080503
  5. CARBAMAZEPINE [Concomitant]
     Dosage: 50 MILLIGRAM
     Route: 048
  6. POLYETHYLENE GLYCOL [Concomitant]
     Dosage: 13.8 GRAM
     Route: 048
     Dates: start: 20080605
  7. REVLIMID [Suspect]
     Dosage: 10 MILLIGRAM
     Route: 048
     Dates: start: 20080611, end: 20080617
  8. ESOMEPRAZOLE SODIUM [Concomitant]
     Dosage: 40 MILLIGRAM
     Route: 048
     Dates: start: 20080605
  9. DEXCHLORPHENIRAMINE MALEATE [Concomitant]
     Dosage: 20 MILLIGRAM
     Route: 048
     Dates: start: 20080605
  10. SPIRONOLACTONE [Concomitant]
     Dosage: 100 MILLIGRAM
     Route: 048
  11. ALLOPURINOL [Concomitant]
     Dosage: 100 MG ALTERNATE TO 300 MG
     Route: 048
  12. PHENOBARBITAL TAB [Concomitant]
     Dosage: 50 MILLIGRAM
     Route: 048
  13. ACETYLSALICYLIC ACID SRT [Concomitant]
     Dosage: 100 MILLIGRAM
     Route: 048
     Dates: start: 20080503
  14. FUROSEMIDE [Concomitant]
     Dosage: 375 MILLIGRAM
     Route: 048
     Dates: start: 20080503
  15. DEXAMETHASONE [Suspect]
     Dosage: 20 MILLIGRAM
     Route: 065
     Dates: start: 20080611, end: 20080617
  16. CYCLOPHOSPHAMIDE [Suspect]
     Dosage: 250 MILLIGRAM
     Route: 065
     Dates: start: 20080611, end: 20080617

REACTIONS (4)
  - OEDEMA DUE TO CARDIAC DISEASE [None]
  - DYSPNOEA [None]
  - PLEURAL EFFUSION [None]
  - CARDIAC AMYLOIDOSIS [None]
